FAERS Safety Report 16271566 (Version 1)
Quarter: 2019Q2

REPORT INFORMATION
  Report Type: Spontaneous
  Country: VE (occurrence: VE)
  Receive Date: 20190503
  Receipt Date: 20190503
  Transmission Date: 20190711
  Serious: Yes (Death, Hospitalization, Other)
  Sender: FDA-Public Use
  Company Number: VE-009507513-1504VEN011742

PATIENT
  Age: 68 Year
  Sex: Female

DRUGS (5)
  1. CUBICIN [Suspect]
     Active Substance: DAPTOMYCIN
     Indication: SKIN INFECTION
     Dosage: 500 MG, Q24H
     Route: 042
     Dates: start: 20100422
  2. LEVOFLOXACIN. [Concomitant]
     Active Substance: LEVOFLOXACIN
     Indication: PRODUCT USED FOR UNKNOWN INDICATION
     Dosage: UNK UNK, UNK
     Dates: start: 20100427
  3. CUBICIN [Suspect]
     Active Substance: DAPTOMYCIN
     Indication: SOFT TISSUE INFECTION
     Dosage: 250 MG, Q24H
     Route: 042
  4. CUBICIN [Suspect]
     Active Substance: DAPTOMYCIN
     Dosage: 250 MG, Q24H
     Route: 042
  5. MEROPENEM. [Concomitant]
     Active Substance: MEROPENEM
     Indication: PRODUCT USED FOR UNKNOWN INDICATION
     Dosage: UNK UNK, UNK
     Dates: start: 20100418

REACTIONS (2)
  - Embolism [Fatal]
  - Hepatic failure [Unknown]

NARRATIVE: CASE EVENT DATE: 20100506
